FAERS Safety Report 9863735 (Version 1)
Quarter: 2014Q1

REPORT INFORMATION
  Report Type: Spontaneous
  Country: US (occurrence: US)
  Receive Date: 20140203
  Receipt Date: 20140203
  Transmission Date: 20141002
  Serious: Yes (Death)
  Sender: FDA-Public Use
  Company Number: US-OPTIMER-20140010

PATIENT
  Age: 83 Year
  Sex: Female

DRUGS (2)
  1. DIFICID [Suspect]
     Indication: CLOSTRIDIUM DIFFICILE COLITIS
     Dosage: UNK
     Route: 050
     Dates: start: 20140116
  2. PREDNISONE [Concomitant]
     Indication: COLITIS MICROSCOPIC
     Dosage: 5 MG, QD

REACTIONS (2)
  - Death [Fatal]
  - Incorrect route of drug administration [Unknown]
